FAERS Safety Report 18576706 (Version 2)
Quarter: 2021Q1

REPORT INFORMATION
  Report Type: Spontaneous
  Country: US (occurrence: US)
  Receive Date: 20201203
  Receipt Date: 20210101
  Transmission Date: 20210419
  Serious: No
  Sender: FDA-Public Use
  Company Number: US-ALKERMES INC.-ALK-2020-005437

PATIENT
  Age: 56 Year
  Sex: Female
  Weight: 77.1 kg

DRUGS (8)
  1. OTHER THERAPEUTIC PRODUCTS [Concomitant]
     Active Substance: UNSPECIFIED INGREDIENT
     Indication: AFFECTIVE DISORDER
     Dosage: UNK
     Route: 065
  2. VIVITROL [Suspect]
     Active Substance: NALTREXONE
     Indication: ALCOHOLISM
     Dosage: 380 MILLIGRAM, QMO
     Route: 030
     Dates: start: 20201221
  3. VIVITROL [Suspect]
     Active Substance: NALTREXONE
     Dosage: 380 MILLIGRAM, QMO
     Route: 030
     Dates: start: 20201026, end: 20201026
  4. ANTIINFLAMMATORY AGENTS [Concomitant]
     Active Substance: UNSPECIFIED INGREDIENT
     Indication: BACK DISORDER
     Dosage: UNK
     Route: 065
  5. OTHER THERAPEUTIC PRODUCTS [Concomitant]
     Active Substance: UNSPECIFIED INGREDIENT
     Indication: SEIZURE
     Dosage: UNK
     Route: 065
  6. VIVITROL [Suspect]
     Active Substance: NALTREXONE
     Dosage: 380 MILLIGRAM, QMO
     Route: 030
     Dates: start: 20201123
  7. VIVITROL [Suspect]
     Active Substance: NALTREXONE
     Dosage: 380 MILLIGRAM, QMO
     Route: 030
     Dates: start: 20200728, end: 20200728
  8. OTHER THERAPEUTIC PRODUCTS [Concomitant]
     Active Substance: UNSPECIFIED INGREDIENT
     Indication: HYPERTENSION
     Dosage: UNK
     Route: 065

REACTIONS (7)
  - Back injury [Not Recovered/Not Resolved]
  - Injection site reaction [Recovered/Resolved]
  - Injection site pain [Recovered/Resolved]
  - Lack of injection site rotation [Recovered/Resolved]
  - Intervertebral disc degeneration [Not Recovered/Not Resolved]
  - Sleep disorder due to a general medical condition [Recovered/Resolved]
  - Sciatica [Not Recovered/Not Resolved]

NARRATIVE: CASE EVENT DATE: 202010
